FAERS Safety Report 19760131 (Version 1)
Quarter: 2021Q3

REPORT INFORMATION
  Report Type: Spontaneous
  Country: US (occurrence: US)
  Receive Date: 20210830
  Receipt Date: 20210830
  Transmission Date: 20211014
  Serious: No
  Sender: FDA-Public Use
  Company Number: US-ELI_LILLY_AND_COMPANY-US202108012318

PATIENT
  Sex: Male

DRUGS (1)
  1. OLUMIANT [Suspect]
     Active Substance: BARICITINIB
     Indication: AICARDI-GOUTIERES SYNDROME
     Dosage: 2 MG, TID
     Route: 048
     Dates: start: 20210826

REACTIONS (2)
  - Overdose [Unknown]
  - Off label use [Unknown]
